FAERS Safety Report 7338809-7 (Version None)
Quarter: 2011Q1

REPORT INFORMATION
  Report Type: 
  Country: None (occurrence: None)
  Receive Date: 20110308
  Receipt Date: 20110224
  Transmission Date: 20110831
  Serious: Yes (Hospitalization)
  Sender: FDA-Public Use
  Company Number: US-MERCK-1102USA03312

PATIENT

DRUGS (1)
  1. ZOLINZA [Suspect]
     Route: 048

REACTIONS (4)
  - PLATELET COUNT DECREASED [None]
  - PNEUMONIA [None]
  - DELUSIONAL DISORDER, UNSPECIFIED TYPE [None]
  - MALAISE [None]
